FAERS Safety Report 21843449 (Version 1)
Quarter: 2023Q1

REPORT INFORMATION
  Report Type: Other
  Country: CN (occurrence: CN)
  Receive Date: 20230110
  Receipt Date: 20230110
  Transmission Date: 20230418
  Serious: Yes (Other)
  Sender: FDA-Public Use
  Company Number: CN-GE HEALTHCARE-2023CSU000120

PATIENT
  Age: 62 Year
  Sex: Female
  Weight: 60 kg

DRUGS (4)
  1. VISIPAQUE [Suspect]
     Active Substance: IODIXANOL
     Indication: Vena cava filter insertion
     Dosage: 640 MG, SINGLE
     Route: 042
     Dates: start: 20221224, end: 20221224
  2. VISIPAQUE [Suspect]
     Active Substance: IODIXANOL
     Indication: Thrombectomy
  3. VISIPAQUE [Suspect]
     Active Substance: IODIXANOL
     Indication: Venous thrombosis limb
  4. GRANULOCYTE COLONY-STIMULATING FACTOR NOS [Concomitant]
     Active Substance: GRANULOCYTE COLONY-STIMULATING FACTOR NOS
     Indication: Venous thrombosis limb
     Dosage: 100 MCG, QD
     Route: 058
     Dates: start: 20221230, end: 20221231

REACTIONS (3)
  - White blood cell count decreased [Recovering/Resolving]
  - Rash [Recovering/Resolving]
  - Pruritus [Recovering/Resolving]

NARRATIVE: CASE EVENT DATE: 20221230
